FAERS Safety Report 13243512 (Version 1)
Quarter: 2017Q1

REPORT INFORMATION
  Report Type: Spontaneous
  Country: US (occurrence: US)
  Receive Date: 20170216
  Receipt Date: 20170216
  Transmission Date: 20170428
  Serious: No
  Sender: FDA-Public Use
  Company Number: US-MALLINCKRODT-T201606600

PATIENT
  Age: 44 Year
  Sex: Female

DRUGS (5)
  1. MILRINONE [Concomitant]
     Active Substance: MILRINONE
  2. OXYGEN. [Concomitant]
     Active Substance: OXYGEN
  3. FLOLAN [Concomitant]
     Active Substance: EPOPROSTENOL SODIUM
  4. INOMAX [Suspect]
     Active Substance: NITRIC OXIDE
     Indication: PULMONARY VASCULAR RESISTANCE ABNORMALITY
  5. NOREPINEPHRINE [Concomitant]
     Active Substance: NOREPINEPHRINE\NOREPINEPHRINE BITARTRATE

REACTIONS (2)
  - Off label use [Unknown]
  - Drug effect decreased [Recovered/Resolved]
